FAERS Safety Report 5665622-9 (Version None)
Quarter: 2008Q1

REPORT INFORMATION
  Report Type: 
  Country: None (occurrence: None)
  Receive Date: 20080314
  Receipt Date: 20070521
  Transmission Date: 20080703
  Serious: No
  Sender: FDA-Public Use
  Company Number: US-ABBOTT-07P-163-0429124-00

PATIENT
  Sex: Male

DRUGS (1)
  1. ADALIMUMAB [Suspect]

REACTIONS (7)
  - HYPERSENSITIVITY [None]
  - JOINT SWELLING [None]
  - NASOPHARYNGITIS [None]
  - OEDEMA PERIPHERAL [None]
  - PRURITUS [None]
  - URTICARIA [None]
  - WEIGHT DECREASED [None]
